FAERS Safety Report 5200546-2 (Version None)
Quarter: 2006Q4

REPORT INFORMATION
  Report Type: 
  Country: None (occurrence: None)
  Receive Date: 20061016
  Receipt Date: 20051109
  Transmission Date: 20070319
  Serious: Yes (Other)
  Sender: FDA-Public Use
  Company Number: 2005153649

PATIENT
  Age: 25 Year
  Sex: Female
  Weight: 96.6162 kg

DRUGS (1)
  1. NEURONTIN [Suspect]
     Indication: TOOTHACHE
     Dosage: (1 IN 1 D), ORAL
     Route: 048
     Dates: start: 20051001, end: 20051001

REACTIONS (10)
  - DIARRHOEA [None]
  - DRUG INEFFECTIVE [None]
  - DYSPEPSIA [None]
  - FLATULENCE [None]
  - MALAISE [None]
  - MENORRHAGIA [None]
  - POLYMENORRHOEA [None]
  - PYREXIA [None]
  - RECTAL TENESMUS [None]
  - TREMOR [None]
